FAERS Safety Report 7319513-8 (Version None)
Quarter: 2011Q1

REPORT INFORMATION
  Report Type: 
  Country: None (occurrence: None)
  Receive Date: 20110228
  Receipt Date: 20100426
  Transmission Date: 20110831
  Serious: No
  Sender: FDA-Public Use
  Company Number: A0856763A

PATIENT
  Age: 63 Year
  Sex: Female

DRUGS (4)
  1. LAMICTAL [Suspect]
  2. MEDRIN [Concomitant]
  3. TYLENOL [Concomitant]
  4. LAMICTAL [Suspect]
     Dosage: 1CAP AT NIGHT
     Route: 048
     Dates: start: 20091101, end: 20100401

REACTIONS (2)
  - IRRITABLE BOWEL SYNDROME [None]
  - MIGRAINE [None]
